FAERS Safety Report 20194001 (Version 1)
Quarter: 2021Q4

REPORT INFORMATION
  Report Type: Report from Study
  Country: RU (occurrence: RU)
  Receive Date: 20211216
  Receipt Date: 20211216
  Transmission Date: 20220303
  Serious: Yes (Hospitalization)
  Sender: FDA-Public Use
  Company Number: RU-CELGENE-RUS-20211202423

PATIENT
  Sex: Male
  Weight: 75.6 kg

DRUGS (29)
  1. OZANIMOD [Suspect]
     Active Substance: OZANIMOD
     Indication: Colitis ulcerative
     Route: 048
     Dates: start: 20180320, end: 20180424
  2. OZANIMOD [Suspect]
     Active Substance: OZANIMOD
     Route: 048
     Dates: start: 20180424, end: 20180528
  3. OZANIMOD [Suspect]
     Active Substance: OZANIMOD
     Route: 048
     Dates: start: 20180528, end: 20180712
  4. OZANIMOD [Suspect]
     Active Substance: OZANIMOD
     Route: 048
     Dates: start: 20180712, end: 20180820
  5. OZANIMOD [Suspect]
     Active Substance: OZANIMOD
     Route: 048
     Dates: start: 20180820, end: 20181114
  6. OZANIMOD [Suspect]
     Active Substance: OZANIMOD
     Route: 048
     Dates: start: 20181114, end: 20190206
  7. OZANIMOD [Suspect]
     Active Substance: OZANIMOD
     Route: 048
     Dates: start: 20190206, end: 20190429
  8. OZANIMOD [Suspect]
     Active Substance: OZANIMOD
     Route: 048
     Dates: start: 20190429, end: 20190724
  9. OZANIMOD [Suspect]
     Active Substance: OZANIMOD
     Route: 048
     Dates: start: 20190724, end: 20191015
  10. OZANIMOD [Suspect]
     Active Substance: OZANIMOD
     Route: 048
     Dates: start: 20191015, end: 20200114
  11. OZANIMOD [Suspect]
     Active Substance: OZANIMOD
     Route: 048
     Dates: start: 20200114, end: 20200331
  12. OZANIMOD [Suspect]
     Active Substance: OZANIMOD
     Route: 048
     Dates: start: 20200331, end: 20200625
  13. OZANIMOD [Suspect]
     Active Substance: OZANIMOD
     Route: 048
     Dates: start: 20200625, end: 20200916
  14. OZANIMOD [Suspect]
     Active Substance: OZANIMOD
     Route: 048
     Dates: start: 20200916, end: 20201209
  15. OZANIMOD [Suspect]
     Active Substance: OZANIMOD
     Route: 048
     Dates: start: 20201209, end: 20210303
  16. OZANIMOD [Suspect]
     Active Substance: OZANIMOD
     Route: 048
     Dates: start: 20210303, end: 20210526
  17. OZANIMOD [Suspect]
     Active Substance: OZANIMOD
     Route: 048
     Dates: start: 20210526, end: 20210809
  18. OZANIMOD [Suspect]
     Active Substance: OZANIMOD
     Route: 048
     Dates: start: 20210809, end: 20211108
  19. OZANIMOD [Suspect]
     Active Substance: OZANIMOD
     Route: 048
     Dates: start: 20211108
  20. OZANIMOD [Suspect]
     Active Substance: OZANIMOD
     Route: 048
     Dates: start: 20211206
  21. MESALAMINE [Concomitant]
     Active Substance: MESALAMINE
     Indication: Colitis ulcerative
     Dosage: 3.6 GRAM
     Route: 048
     Dates: start: 20150915, end: 20180522
  22. MESALAMINE [Concomitant]
     Active Substance: MESALAMINE
     Dosage: 4.8 MILLIGRAM
     Route: 048
     Dates: start: 20180523
  23. EXFORGE [Concomitant]
     Active Substance: AMLODIPINE BESYLATE\VALSARTAN
     Indication: Hypertension
     Dosage: 5/80MG
     Route: 048
     Dates: start: 20170726, end: 20180423
  24. EXFORGE [Concomitant]
     Active Substance: AMLODIPINE BESYLATE\VALSARTAN
     Dosage: 10/80MG
     Route: 048
     Dates: start: 20180424
  25. PREDNISOLONE [Concomitant]
     Active Substance: PREDNISOLONE
     Indication: Colitis ulcerative
     Dosage: 50 MILLIGRAM
     Route: 048
     Dates: start: 20180730, end: 20180914
  26. PREDNISOLONE [Concomitant]
     Active Substance: PREDNISOLONE
     Indication: Colitis ulcerative
     Dosage: 20 MILLIGRAM
     Route: 048
     Dates: start: 20180915, end: 20181001
  27. PREDNISOLONE [Concomitant]
     Active Substance: PREDNISOLONE
     Dosage: 10 MILLIGRAM
     Route: 048
     Dates: start: 20181002, end: 20181012
  28. PREDNISOLONE [Concomitant]
     Active Substance: PREDNISOLONE
     Dosage: 5 MILLIGRAM
     Route: 048
     Dates: start: 20181013, end: 20181020
  29. PREDNISOLONE [Concomitant]
     Active Substance: PREDNISOLONE
     Dosage: 30 MILLIGRAM
     Route: 048
     Dates: start: 20210210

REACTIONS (1)
  - COVID-19 [Recovering/Resolving]

NARRATIVE: CASE EVENT DATE: 20211123
